FAERS Safety Report 10511976 (Version 1)
Quarter: 2014Q4

REPORT INFORMATION
  Report Type: Spontaneous
  Country: US (occurrence: US)
  Receive Date: 20141010
  Receipt Date: 20141010
  Transmission Date: 20150528
  Serious: No
  Sender: FDA-Public Use
  Company Number: US-PFIZER INC-2014277900

PATIENT
  Age: 67 Year
  Sex: Male
  Weight: 92.06 kg

DRUGS (1)
  1. LYRICA [Suspect]
     Active Substance: PREGABALIN
     Indication: PAIN IN EXTREMITY
     Dosage: 1 DF, 2X/DAY (ONE CAPSULE TWICE A DAY)

REACTIONS (1)
  - Pain in extremity [Not Recovered/Not Resolved]
